FAERS Safety Report 15523393 (Version 1)
Quarter: 2018Q4

REPORT INFORMATION
  Report Type: Report from Study
  Country: PH (occurrence: PH)
  Receive Date: 20181018
  Receipt Date: 20181018
  Transmission Date: 20190205
  Serious: Yes (Death)
  Sender: FDA-Public Use
  Company Number: PH-OTSUKA-2018_033560

PATIENT
  Age: 31 Year
  Sex: Male

DRUGS (2)
  1. CILOSTAZOL. [Suspect]
     Active Substance: CILOSTAZOL
     Indication: HYPERTENSION
     Dosage: UNK
     Route: 065
     Dates: end: 201809
  2. CILOSTAZOL. [Suspect]
     Active Substance: CILOSTAZOL
     Indication: POOR PERIPHERAL CIRCULATION

REACTIONS (2)
  - Death [Fatal]
  - Product use in unapproved indication [Unknown]

NARRATIVE: CASE EVENT DATE: 20180916
